FAERS Safety Report 24073267 (Version 1)
Quarter: 2024Q3

REPORT INFORMATION
  Report Type: Spontaneous
  Country: US (occurrence: None)
  Receive Date: 20240710
  Receipt Date: 20240710
  Transmission Date: 20241017
  Serious: Yes (Hospitalization)
  Sender: Public
  Company Number: None

PATIENT
  Sex: Female
  Weight: 96.9 kg

DRUGS (2)
  1. CARBOPLATIN [Suspect]
     Active Substance: CARBOPLATIN
  2. GEMCITABINE HYDROCHLORIDE [Concomitant]

REACTIONS (13)
  - Arthralgia [None]
  - Gait inability [None]
  - Pain [None]
  - Lethargy [None]
  - Dizziness [None]
  - Limb injury [None]
  - Pain [None]
  - Wound necrosis [None]
  - Haemoglobin decreased [None]
  - Red blood cell count decreased [None]
  - Hypothyroidism [None]
  - Pain in extremity [None]
  - Cellulitis [None]

NARRATIVE: CASE EVENT DATE: 20230701
